FAERS Safety Report 11002187 (Version 1)
Quarter: 2015Q2

REPORT INFORMATION
  Report Type: Spontaneous
  Country: IT (occurrence: IT)
  Receive Date: 20150408
  Receipt Date: 20150408
  Transmission Date: 20150821
  Serious: Yes (Other)
  Sender: FDA-Public Use
  Company Number: IT-JNJFOC-20150319211

PATIENT

DRUGS (2)
  1. DOXORUBICIN HYDROCHLORIDE. [Suspect]
     Active Substance: DOXORUBICIN HYDROCHLORIDE
     Indication: PRODUCT USED FOR UNKNOWN INDICATION
     Route: 042
  2. IL2 [Suspect]
     Active Substance: ALDESLEUKIN
     Indication: PRODUCT USED FOR UNKNOWN INDICATION
     Route: 065

REACTIONS (34)
  - Pericardial effusion [Unknown]
  - Asthenia [Unknown]
  - Pyrexia [Unknown]
  - Leukopenia [Unknown]
  - Fatigue [Unknown]
  - Decreased appetite [Unknown]
  - Hypokalaemia [Unknown]
  - Conjunctivitis [Unknown]
  - Headache [Unknown]
  - Alopecia [Unknown]
  - Neutropenia [Unknown]
  - Mucosal infection [Unknown]
  - Weight decreased [Unknown]
  - Alanine aminotransferase increased [Unknown]
  - Pelvic pain [Unknown]
  - Hypertension [Unknown]
  - Abdominal pain [Unknown]
  - Gastritis [Unknown]
  - Oesophagitis [Unknown]
  - Influenza like illness [Unknown]
  - Arthralgia [Unknown]
  - Nail disorder [Unknown]
  - Tachycardia [Unknown]
  - Aspartate aminotransferase increased [Unknown]
  - Azotaemia [Unknown]
  - Constipation [Unknown]
  - Anaemia [Unknown]
  - Nausea [Unknown]
  - Stomatitis [Unknown]
  - Dyspnoea [Unknown]
  - Vomiting [Unknown]
  - Sinusitis [Unknown]
  - Palmar-plantar erythrodysaesthesia syndrome [Unknown]
  - Phlebitis [Unknown]
